FAERS Safety Report 6663409-1 (Version None)
Quarter: 2010Q2

REPORT INFORMATION
  Report Type: 
  Country: None (occurrence: None)
  Receive Date: 20100401
  Receipt Date: 20100319
  Transmission Date: 20101027
  Serious: Yes (Other)
  Sender: FDA-Public Use
  Company Number: US-BAYER-201020179GPV

PATIENT

DRUGS (11)
  1. FLUDARABINE PHOSPHATE [Suspect]
     Indication: HAEMATOLOGICAL MALIGNANCY
     Dosage: DAYS -6, -5, -4, -3
     Route: 065
  2. MELPHALAN HYDROCHLORIDE [Suspect]
     Indication: HAEMATOLOGICAL MALIGNANCY
     Dosage: AS USED: 140 MG/M2
     Route: 065
  3. THIOTEPA [Suspect]
     Indication: HAEMATOLOGICAL MALIGNANCY
     Dosage: DAY -7
     Route: 065
  4. THYMOGLOBULIN [Suspect]
     Indication: HAEMATOLOGICAL MALIGNANCY
     Dosage: DAYS -6, -5, -4, -3
     Route: 065
  5. PENTAMIDINE ISETHIONATE [Concomitant]
     Indication: ANTIFUNGAL PROPHYLAXIS
     Dosage: STARTED ON DAY -1
  6. ATOVAQUONE [Concomitant]
     Indication: INFECTION PROPHYLAXIS
     Dosage: STARTED ON DAY -1
  7. FOSCARNET [Concomitant]
     Indication: ANTIFUNGAL PROPHYLAXIS
  8. GANCICLOVIR [Concomitant]
     Indication: ANTIVIRAL PROPHYLAXIS
  9. VALACICLOVIR [Concomitant]
     Indication: ANTIVIRAL PROPHYLAXIS
  10. VORICONAZOLE [Concomitant]
     Indication: ANTIFUNGAL PROPHYLAXIS
  11. CASPOFUNGIN [Concomitant]
     Indication: ANTIFUNGAL PROPHYLAXIS

REACTIONS (2)
  - BK VIRUS INFECTION [None]
  - NEPHROPATHY TOXIC [None]
